FAERS Safety Report 12245715 (Version 1)
Quarter: 2016Q2

REPORT INFORMATION
  Report Type: Spontaneous
  Country: US (occurrence: US)
  Receive Date: 20160407
  Receipt Date: 20160407
  Transmission Date: 20160815
  Serious: Yes (Hospitalization, Other)
  Sender: FDA-Public Use
  Company Number: US-NOVOPROD-486169

PATIENT
  Age: 73 Year
  Sex: Male

DRUGS (6)
  1. ASPIRIN                            /00002701/ [Concomitant]
     Active Substance: ASPIRIN
     Indication: CARDIOVASCULAR EVENT PROPHYLAXIS
     Dosage: 2 TAB, UNK
     Route: 048
  2. NOVOLIN N [Suspect]
     Active Substance: INSULIN HUMAN
     Indication: TYPE 1 DIABETES MELLITUS
     Dosage: 30 U IN THE MORNING; 15 U AT NIGHT
     Route: 058
  3. FUROSEMIDE. [Concomitant]
     Active Substance: FUROSEMIDE
     Indication: PRODUCT USED FOR UNKNOWN INDICATION
     Dosage: 40 G, UNK
  4. NOVOLIN R [Suspect]
     Active Substance: INSULIN HUMAN
     Indication: TYPE 1 DIABETES MELLITUS
     Dosage: SLIDING SCALE
     Route: 058
  5. ENALAPRIL [Concomitant]
     Active Substance: ENALAPRIL
     Indication: PRODUCT USED FOR UNKNOWN INDICATION
     Dosage: 10 MG, UNK
  6. GABAPENTIN. [Concomitant]
     Active Substance: GABAPENTIN
     Indication: PRODUCT USED FOR UNKNOWN INDICATION
     Dosage: 300 MG, UNK

REACTIONS (5)
  - Shock hypoglycaemic [Not Recovered/Not Resolved]
  - Blood glucose increased [Unknown]
  - Incorrect dose administered [Not Recovered/Not Resolved]
  - Shock hypoglycaemic [Recovered/Resolved]
  - Blindness [Unknown]

NARRATIVE: CASE EVENT DATE: 2004
